FAERS Safety Report 7789039-6 (Version None)
Quarter: 2011Q3

REPORT INFORMATION
  Report Type: 
  Country: None (occurrence: None)
  Receive Date: 20110930
  Receipt Date: 20110922
  Transmission Date: 20111222
  Serious: Yes (Hospitalization, Other)
  Sender: FDA-Public Use
  Company Number: CA-JNJFOC-20110809126

PATIENT
  Sex: Male

DRUGS (1)
  1. DURAGESIC-100 [Suspect]
     Indication: PRODUCT USED FOR UNKNOWN INDICATION
     Route: 062

REACTIONS (8)
  - INSOMNIA [None]
  - CONFUSIONAL STATE [None]
  - DEMENTIA [None]
  - BLINDNESS [None]
  - HALLUCINATION [None]
  - SUICIDAL IDEATION [None]
  - DISORIENTATION [None]
  - HEADACHE [None]
